FAERS Safety Report 14381612 (Version 1)
Quarter: 2018Q1

REPORT INFORMATION
  Report Type: Spontaneous
  Country: US (occurrence: US)
  Receive Date: 20180112
  Receipt Date: 20180112
  Transmission Date: 20180509
  Serious: No
  Sender: FDA-Public Use
  Company Number: US-PFIZER INC-2018009421

PATIENT
  Age: 75 Year
  Sex: Female
  Weight: 73.48 kg

DRUGS (1)
  1. FLECTOR [Suspect]
     Active Substance: DICLOFENAC EPOLAMINE
     Indication: PAIN
     Dosage: UNK
     Route: 062
     Dates: start: 20171224

REACTIONS (3)
  - Poor quality drug administered [Unknown]
  - Blood glucose increased [Unknown]
  - Product adhesion issue [Unknown]
